FAERS Safety Report 4503434-X (Version None)
Quarter: 2004Q4

REPORT INFORMATION
  Report Type: 
  Country: None (occurrence: None)
  Receive Date: 20041112
  Receipt Date: 20041103
  Transmission Date: 20050328
  Serious: Yes (Hospitalization, Other)
  Sender: FDA-Public Use
  Company Number: HQWYE228204NOV04

PATIENT
  Age: 36 Year
  Sex: Female
  Weight: 54.4 kg

DRUGS (6)
  1. RAPAMUNE [Suspect]
     Indication: PROPHYLAXIS AGAINST TRANSPLANT REJECTION
     Dosage: 5 MG 1X PER 1 DAY
     Dates: start: 20030411, end: 20040104
  2. PREDNISONE [Concomitant]
  3. PROGRAF [Concomitant]
  4. BACTRIM DS [Concomitant]
  5. NORVASC [Concomitant]
  6. LABETALOL HCL [Concomitant]

REACTIONS (5)
  - ANAEMIA [None]
  - LOBAR PNEUMONIA [None]
  - MENORRHAGIA [None]
  - PLEURITIC PAIN [None]
  - PNEUMONITIS [None]
